FAERS Safety Report 25481144 (Version 2)
Quarter: 2025Q3

REPORT INFORMATION
  Report Type: Report from Study
  Country: IN (occurrence: IN)
  Receive Date: 20250626
  Receipt Date: 20250710
  Transmission Date: 20251020
  Serious: Yes (Other)
  Sender: CIPLA
  Company Number: IN-CIPLA LTD.-2025IN07526

PATIENT

DRUGS (6)
  1. TORSEMIDE [Suspect]
     Active Substance: TORSEMIDE
     Indication: Product used for unknown indication
     Dosage: DOSE USED: UNKNOWN, FREQUENCY: 2 (IN THE MORNING)
     Route: 048
     Dates: start: 202503
  2. SACUBITRIL\VALSARTAN [Suspect]
     Active Substance: SACUBITRIL\VALSARTAN
     Indication: Product used for unknown indication
     Dosage: 50 MILLIGRAM, QD (IN THE MORNING)
     Route: 048
     Dates: start: 202503
  3. METOPROLOL [Suspect]
     Active Substance: METOPROLOL
     Indication: Product used for unknown indication
     Dosage: 25 MILLIGRAM, QD (IN THE MORNING) (PROLONGED RELEASE TABLET)
     Route: 048
     Dates: start: 202503
  4. ROSYCAP GOLD [Concomitant]
     Indication: Product used for unknown indication
     Route: 065
  5. SORBITRATE [Concomitant]
     Active Substance: ISOSORBIDE DINITRATE
     Indication: Product used for unknown indication
     Route: 065
  6. PREGEB [Concomitant]
     Indication: Product used for unknown indication
     Route: 065

REACTIONS (3)
  - Chest pain [Not Recovered/Not Resolved]
  - Coronary artery disease [Not Recovered/Not Resolved]
  - Drug ineffective [Unknown]

NARRATIVE: CASE EVENT DATE: 20250301
